FAERS Safety Report 13257580 (Version 2)
Quarter: 2017Q2

REPORT INFORMATION
  Report Type: Spontaneous
  Country: DE (occurrence: DE)
  Receive Date: 20170221
  Receipt Date: 20170407
  Transmission Date: 20170830
  Serious: Yes (Other)
  Sender: FDA-Public Use
  Company Number: DE-ASCEND THERAPEUTICS-1063395

PATIENT
  Age: 47 Year
  Sex: Female
  Weight: 64 kg

DRUGS (2)
  1. UTROGESTAN MICRONIZED PROGESTERONE [Concomitant]
     Route: 048
  2. ESTROGEL [Suspect]
     Active Substance: ESTRADIOL
     Indication: HORMONE REPLACEMENT THERAPY
     Route: 058
     Dates: start: 20161014, end: 20161115

REACTIONS (2)
  - Thrombosis [Unknown]
  - Contraindication to medical treatment [Recovered/Resolved]
